FAERS Safety Report 4883810-6 (Version None)
Quarter: 2006Q1

REPORT INFORMATION
  Report Type: 
  Country: None (occurrence: None)
  Receive Date: 20060118
  Receipt Date: 20060111
  Transmission Date: 20060701
  Serious: Yes (Hospitalization)
  Sender: FDA-Public Use
  Company Number: FR-BRISTOL-MYERS SQUIBB COMPANY-13246798

PATIENT
  Age: 37 Year
  Sex: Female
  Weight: 56 kg

DRUGS (5)
  1. SUSTIVA [Suspect]
     Indication: HIV INFECTION
     Route: 048
     Dates: start: 20000301
  2. VIDEX [Suspect]
     Dates: start: 19980701, end: 20000301
  3. ZERIT [Suspect]
     Dates: start: 19980701, end: 20000301
  4. COMBIVIR [Suspect]
     Indication: HIV INFECTION
     Dates: start: 20000301
  5. VIRACEPT [Suspect]
     Dates: start: 19980701, end: 20000301

REACTIONS (7)
  - COUGH [None]
  - HAEMATOMA [None]
  - HYPERCHOLESTEROLAEMIA [None]
  - HYPERTRIGLYCERIDAEMIA [None]
  - LIPODYSTROPHY ACQUIRED [None]
  - LIPOHYPERTROPHY [None]
  - MACROCYTOSIS [None]
